FAERS Safety Report 13049171 (Version 1)
Quarter: 2016Q4

REPORT INFORMATION
  Report Type: Report from Study
  Country: JP (occurrence: JP)
  Receive Date: 20161221
  Receipt Date: 20161221
  Transmission Date: 20170207
  Serious: Yes (Other)
  Sender: FDA-Public Use
  Company Number: JP-AMGEN-JPNNI2016180305

PATIENT
  Age: 70 Year
  Sex: Male
  Weight: 53 kg

DRUGS (11)
  1. PACLITAXEL. [Suspect]
     Active Substance: PACLITAXEL
     Dosage: 80 MG/M2, UNK
     Route: 041
     Dates: start: 20160829, end: 20160829
  2. PEGFILGRASTIM [Suspect]
     Active Substance: PEGFILGRASTIM
     Indication: COLONY STIMULATING FACTOR PROPHYLAXIS
     Dosage: 3.6 MG, UNK
     Route: 058
     Dates: start: 20160830, end: 20160830
  3. MAGMITT [Concomitant]
     Active Substance: MAGNESIUM OXIDE
     Indication: CONSTIPATION
     Dosage: UNK
     Route: 048
  4. AMLODIPINE [Concomitant]
     Active Substance: AMLODIPINE BESYLATE
     Indication: HYPERTENSION
     Dosage: UNK
     Route: 048
  5. PACLITAXEL. [Suspect]
     Active Substance: PACLITAXEL
     Dosage: 80 MG/M2, UNK
     Route: 041
     Dates: start: 20160912, end: 20160912
  6. RAMUCIRUMAB RECOMBINANT [Concomitant]
     Dosage: 8 MG/KG, UNK
     Route: 041
     Dates: start: 20160829, end: 20160829
  7. RAMUCIRUMAB RECOMBINANT [Concomitant]
     Dosage: 8 MG/KG, UNK
     Route: 041
     Dates: start: 20160912, end: 20160912
  8. PEGFILGRASTIM [Suspect]
     Active Substance: PEGFILGRASTIM
     Dosage: 3.6 MG, UNK
     Route: 058
     Dates: start: 20160914, end: 20160914
  9. RAMUCIRUMAB RECOMBINANT [Concomitant]
     Indication: GASTRIC CANCER
     Dosage: UNK
     Route: 041
  10. PACLITAXEL. [Suspect]
     Active Substance: PACLITAXEL
     Indication: GASTRIC CANCER
     Dosage: UNK
     Route: 041
  11. CYMBALTA [Concomitant]
     Active Substance: DULOXETINE HYDROCHLORIDE
     Indication: NEUROPATHY PERIPHERAL
     Dosage: UNK
     Route: 048

REACTIONS (3)
  - Chemotherapy [Unknown]
  - Blood bilirubin increased [Recovered/Resolved]
  - Back pain [Recovered/Resolved]

NARRATIVE: CASE EVENT DATE: 20160905
